FAERS Safety Report 8248430-4 (Version None)
Quarter: 2012Q1

REPORT INFORMATION
  Report Type: 
  Country: None (occurrence: None)
  Receive Date: 20120330
  Receipt Date: 20120321
  Transmission Date: 20120608
  Serious: Yes (Hospitalization, Other)
  Sender: FDA-Public Use
  Company Number: BR-ASTRAZENECA-2012SE19502

PATIENT
  Sex: Male

DRUGS (1)
  1. CRESTOR [Suspect]
     Indication: BLOOD CHOLESTEROL INCREASED
     Route: 048
     Dates: start: 20110601, end: 20110801

REACTIONS (6)
  - TENDONITIS [None]
  - ANAL PRURITUS [None]
  - MYALGIA [None]
  - TENDON PAIN [None]
  - BACK PAIN [None]
  - ARTHRALGIA [None]
